FAERS Safety Report 5254655-2 (Version None)
Quarter: 2007Q1

REPORT INFORMATION
  Report Type: 
  Country: None (occurrence: None)
  Receive Date: 20070302
  Receipt Date: 20070221
  Transmission Date: 20070707
  Serious: Yes (Hospitalization)
  Sender: FDA-Public Use
  Company Number: AU-PFIZER INC-2007015101

PATIENT
  Sex: Male

DRUGS (3)
  1. CAVERJECT POWDER, STERILE [Suspect]
  2. KARVEZIDE [Concomitant]
  3. FELODIPINE [Concomitant]

REACTIONS (3)
  - DRUG EFFECT DECREASED [None]
  - ERECTILE DYSFUNCTION [None]
  - FEMUR FRACTURE [None]
